FAERS Safety Report 6391292-0 (Version None)
Quarter: 2009Q4

REPORT INFORMATION
  Report Type: 
  Country: None (occurrence: None)
  Receive Date: 20091007
  Receipt Date: 20090922
  Transmission Date: 20100525
  Serious: Yes (Other)
  Sender: FDA-Public Use
  Company Number: PHEH2009US11552

PATIENT

DRUGS (3)
  1. PROLEUKIN [Suspect]
     Dosage: NO TREATMENT
  2. PROLEUKIN [Suspect]
     Dosage: UNK
  3. ALLERGENS [Concomitant]
     Dosage: UNK
     Dates: start: 20010101

REACTIONS (4)
  - ABDOMINAL MASS [None]
  - DRUG INEFFECTIVE [None]
  - METASTASES TO BONE [None]
  - SURGERY [None]
